FAERS Safety Report 17957727 (Version 1)
Quarter: 2020Q2

REPORT INFORMATION
  Report Type: Spontaneous
  Country: GB (occurrence: GB)
  Receive Date: 20200629
  Receipt Date: 20200629
  Transmission Date: 20200714
  Serious: Yes (Other)
  Sender: FDA-Public Use
  Company Number: GB-ACCORD-186803

PATIENT
  Age: 51 Year
  Sex: Male

DRUGS (5)
  1. CLOZAPINE. [Concomitant]
     Active Substance: CLOZAPINE
     Indication: SCHIZOPHRENIA
     Dosage: 300 MG DAILY USING AN ORAL/INTRAMUSCULAR TITRATION REGIMEN
     Dates: start: 201801
  2. BISOPROLOL [Concomitant]
     Active Substance: BISOPROLOL
     Indication: CARDIAC FAILURE
     Dosage: GRADUALLY TITRATED UPWARDS TO 10 MG DAILY
     Dates: start: 2018
  3. RAMIPRIL. [Concomitant]
     Active Substance: RAMIPRIL
     Indication: CARDIAC FAILURE
     Dosage: GRADUALLY TITRATED UPWARDS TO 10 MG DAILY
     Dates: start: 2018
  4. LITHIUM. [Concomitant]
     Active Substance: LITHIUM
  5. EPLERENONE. [Suspect]
     Active Substance: EPLERENONE
     Indication: CARDIAC FAILURE
     Dates: start: 201811, end: 201811

REACTIONS (1)
  - Renal impairment [Unknown]

NARRATIVE: CASE EVENT DATE: 201811
